FAERS Safety Report 17055106 (Version 4)
Quarter: 2020Q3

REPORT INFORMATION
  Report Type: Spontaneous
  Country: US (occurrence: US)
  Receive Date: 20191120
  Receipt Date: 20200901
  Transmission Date: 20201102
  Serious: Yes (Other)
  Sender: FDA-Public Use
  Company Number: US-PURDUE-USA-2019-0149157

PATIENT
  Sex: Male
  Weight: 63.49 kg

DRUGS (5)
  1. OXYCONTIN [Suspect]
     Active Substance: OXYCODONE HYDROCHLORIDE
     Dosage: 80 MG, TID
     Route: 048
  2. HYDROCODONE BITARTRATE/ACETAMINOPHEN [Suspect]
     Active Substance: ACETAMINOPHEN\HYDROCODONE BITARTRATE
     Indication: PAIN
     Dosage: 7.5/325 MG, QID
     Route: 048
  3. HYDROCODONE BITARTRATE/ACETAMINOPHEN [Suspect]
     Active Substance: ACETAMINOPHEN\HYDROCODONE BITARTRATE
     Indication: BREAKTHROUGH PAIN
  4. OXYCONTIN [Suspect]
     Active Substance: OXYCODONE HYDROCHLORIDE
     Indication: PRODUCT USED FOR UNKNOWN INDICATION
     Dosage: UNK
     Route: 048
     Dates: start: 1997
  5. OXYCODONE/ ACETAMINOPHEN TABLETS [Suspect]
     Active Substance: ACETAMINOPHEN\OXYCODONE HYDROCHLORIDE
     Indication: PAIN
     Dosage: 7.5/325 MG, QID
     Route: 048

REACTIONS (10)
  - Tooth fracture [Unknown]
  - Mastication disorder [Unknown]
  - Visual impairment [Unknown]
  - Choking [Unknown]
  - Dental caries [Unknown]
  - Drug dependence [Unknown]
  - Tooth loss [Unknown]
  - Drug withdrawal syndrome [Unknown]
  - Toothache [Unknown]
  - Mental disorder [Unknown]

NARRATIVE: CASE EVENT DATE: 1996
